FAERS Safety Report 7389373-8 (Version None)
Quarter: 2011Q2

REPORT INFORMATION
  Report Type: 
  Country: None (occurrence: None)
  Receive Date: 20110401
  Receipt Date: 20110324
  Transmission Date: 20111010
  Serious: Yes (Other)
  Sender: FDA-Public Use
  Company Number: B0708621A

PATIENT
  Sex: Female

DRUGS (1)
  1. RANIPLEX [Suspect]
     Dosage: 300MG PER DAY
     Route: 048
     Dates: start: 20110105, end: 20110118

REACTIONS (5)
  - SOMNOLENCE [None]
  - HYPOTONIA [None]
  - PETIT MAL EPILEPSY [None]
  - EYE DISORDER [None]
  - DEPRESSED LEVEL OF CONSCIOUSNESS [None]
